FAERS Safety Report 13716209 (Version 1)
Quarter: 2017Q3

REPORT INFORMATION
  Report Type: Spontaneous
  Country: US (occurrence: US)
  Receive Date: 20170705
  Receipt Date: 20170705
  Transmission Date: 20171127
  Serious: Yes (Death, Hospitalization, Other)
  Sender: FDA-Public Use
  Company Number: US-PFIZER INC-2015384574

PATIENT
  Age: 70 Year
  Sex: Female

DRUGS (13)
  1. REVATIO [Suspect]
     Active Substance: SILDENAFIL CITRATE
     Indication: MITRAL VALVE DISEASE
  2. BUMETANIDE. [Concomitant]
     Active Substance: BUMETANIDE
     Dosage: 1 G, UNK
  3. COUMADIN [Concomitant]
     Active Substance: WARFARIN SODIUM
     Dosage: 1 MG, UNK
     Route: 048
     Dates: start: 2013
  4. REVATIO [Suspect]
     Active Substance: SILDENAFIL CITRATE
     Indication: ATRIAL FIBRILLATION
  5. DIGOXIN. [Concomitant]
     Active Substance: DIGOXIN
     Indication: THYROID DISORDER
     Dosage: 0.125 G, 1X/DAY
  6. FOLIC ACID. [Concomitant]
     Active Substance: FOLIC ACID
     Indication: CARDIAC DISORDER
     Dosage: 1 MG, 1X/DAY
     Route: 048
     Dates: start: 2013
  7. COUMADIN [Concomitant]
     Active Substance: WARFARIN SODIUM
     Indication: ANTICOAGULANT THERAPY
     Dosage: 1 G, UNK
     Route: 048
  8. LEVOTHYROXINE. [Concomitant]
     Active Substance: LEVOTHYROXINE
     Indication: CARDIAC DISORDER
     Dosage: 125 MG, 1X/DAY
     Route: 048
     Dates: start: 2013
  9. DIGOXIN. [Concomitant]
     Active Substance: DIGOXIN
     Dosage: 125 MG,ONE TABLET ALTERNATE DAY
     Route: 048
  10. REVATIO [Suspect]
     Active Substance: SILDENAFIL CITRATE
     Indication: CARDIAC FAILURE
  11. REVATIO [Suspect]
     Active Substance: SILDENAFIL CITRATE
     Indication: VENTRICULAR TACHYCARDIA
     Dosage: 6 ^CAPSULES^, DAILY
     Route: 048
     Dates: start: 2013
  12. CEPHALEXIN. [Concomitant]
     Active Substance: CEPHALEXIN
     Indication: SEPSIS
     Dosage: 500 MG, 4X/DAY IN THE MORNING, LUNCH, DINNER, AND AGAIN AT BEDTIME)
     Route: 048
     Dates: start: 2014
  13. REVATIO [Suspect]
     Active Substance: SILDENAFIL CITRATE
     Indication: CONGESTIVE CARDIOMYOPATHY
     Dosage: 20 MG, 3X/DAY
     Dates: start: 20130330

REACTIONS (3)
  - Cerebral thrombosis [Fatal]
  - Product use in unapproved indication [Unknown]
  - Product use issue [Unknown]

NARRATIVE: CASE EVENT DATE: 2013
